FAERS Safety Report 6033341-5 (Version None)
Quarter: 2009Q1

REPORT INFORMATION
  Report Type: 
  Country: None (occurrence: None)
  Receive Date: 20090109
  Receipt Date: 20081107
  Transmission Date: 20090719
  Serious: No
  Sender: FDA-Public Use
  Company Number: A0755451A

PATIENT
  Sex: Male

DRUGS (2)
  1. REQUIP XL [Suspect]
     Indication: RESTLESS LEGS SYNDROME
     Route: 048
  2. OPANA (OXYMORPHONE HCL) [Suspect]

REACTIONS (3)
  - DRUG INTERACTION [None]
  - INSOMNIA [None]
  - RESTLESS LEGS SYNDROME [None]
